FAERS Safety Report 6253264-6 (Version None)
Quarter: 2009Q3

REPORT INFORMATION
  Report Type: 
  Country: None (occurrence: None)
  Receive Date: 20090701
  Receipt Date: 20090629
  Transmission Date: 20100115
  Serious: Yes (Other)
  Sender: FDA-Public Use
  Company Number: US-ASTRAZENECA-2009UW18145

PATIENT
  Age: 84 Year
  Sex: Male
  Weight: 74.8 kg

DRUGS (9)
  1. CRESTOR [Suspect]
     Route: 048
     Dates: start: 20020101
  2. CRESTOR [Suspect]
     Dosage: 2.5 MG EVERY OTHER DAY; 5 MG EVERY OTHER DAY
     Route: 048
  3. SULAR [Concomitant]
     Indication: BLOOD PRESSURE
  4. RAMIPRIL [Concomitant]
  5. DIGOXIN [Concomitant]
  6. ZEBETA [Concomitant]
  7. NIACIN [Concomitant]
  8. ASPIRIN [Concomitant]
  9. COENZYME Q10 [Concomitant]

REACTIONS (6)
  - ATROPHY [None]
  - BLOOD CREATINE PHOSPHOKINASE INCREASED [None]
  - COGNITIVE DISORDER [None]
  - FALL [None]
  - MUSCULOSKELETAL DISORDER [None]
  - ROTATOR CUFF SYNDROME [None]
